FAERS Safety Report 13471647 (Version 1)
Quarter: 2017Q2

REPORT INFORMATION
  Report Type: Spontaneous
  Country: US (occurrence: US)
  Receive Date: 20170421
  Receipt Date: 20170421
  Transmission Date: 20170830
  Serious: Yes (Hospitalization)
  Sender: FDA-Public Use
  Company Number: None

PATIENT
  Age: 28 Year
  Sex: Male
  Weight: 86.27 kg

DRUGS (1)
  1. NALOXEGOL [Suspect]
     Active Substance: NALOXEGOL
     Indication: DRUG USE DISORDER
     Route: 048
     Dates: start: 20170129, end: 20170129

REACTIONS (3)
  - Vomiting [None]
  - Nausea [None]
  - Abdominal pain [None]

NARRATIVE: CASE EVENT DATE: 20170129
